FAERS Safety Report 8170472-8 (Version None)
Quarter: 2012Q1

REPORT INFORMATION
  Report Type: 
  Country: None (occurrence: None)
  Receive Date: 20120228
  Receipt Date: 20120223
  Transmission Date: 20120608
  Serious: No
  Sender: FDA-Public Use
  Company Number: US-PFIZER INC-2012037173

PATIENT
  Sex: Female
  Weight: 68.027 kg

DRUGS (6)
  1. LEVOTHYROXINE [Concomitant]
     Dosage: UNK, DAILY
  2. CODEINE [Suspect]
     Dosage: UNK
  3. LYRICA [Suspect]
     Indication: FIBROMYALGIA
     Dosage: 50 MG, 3X/DAY
     Route: 048
     Dates: start: 20110117, end: 20110701
  4. ZOLOFT [Suspect]
     Indication: DEPRESSION
     Dosage: 1.5 MG TAB DAILY
     Route: 048
     Dates: start: 20110701
  5. ULTRAM [Suspect]
     Indication: FIBROMYALGIA
     Dosage: 100 MG, 3X/DAY
  6. HYDROCHLOROTHIAZIDE [Concomitant]
     Indication: HYPERTENSION
     Dosage: 25 MG, DAILY

REACTIONS (6)
  - INSOMNIA [None]
  - DRUG HYPERSENSITIVITY [None]
  - OEDEMA PERIPHERAL [None]
  - MALAISE [None]
  - PAIN [None]
  - DRUG INEFFECTIVE [None]
